FAERS Safety Report 8382003-8 (Version None)
Quarter: 2012Q2

REPORT INFORMATION
  Report Type: 
  Country: None (occurrence: None)
  Receive Date: 20120507
  Receipt Date: 20100930
  Transmission Date: 20120825
  Serious: Yes (Death, Other)
  Sender: FDA-Public Use
  Company Number: 2010PROUSA01310

PATIENT
  Age: 82 Year
  Sex: Male
  Weight: 83 kg

DRUGS (2)
  1. PROVENGE [Suspect]
     Indication: PROSTATE CANCER METASTATIC
     Dosage: 250 ML, SINGLE, INTRAVENOUS
     Route: 042
     Dates: start: 20100827, end: 20100827
  2. PROVENGE [Suspect]
     Dosage: 250 ML, SINGLE, INTRAVENOUS
     Route: 042
     Dates: start: 20100920, end: 20100920

REACTIONS (5)
  - PAIN [None]
  - DYSPNOEA [None]
  - NEOPLASM PROGRESSION [None]
  - FATIGUE [None]
  - PROSTATE CANCER [None]
